FAERS Safety Report 24869818 (Version 2)
Quarter: 2025Q1

REPORT INFORMATION
  Report Type: Report from Study
  Country: BR (occurrence: BR)
  Receive Date: 20250121
  Receipt Date: 20250129
  Transmission Date: 20250409
  Serious: Yes (Hospitalization, Congenital Anomaly)
  Sender: BIOGEN
  Company Number: BR-BIOGEN-2025BI01297118

PATIENT
  Sex: Male
  Weight: 3.24 kg

DRUGS (1)
  1. TYSABRI [Suspect]
     Active Substance: NATALIZUMAB
     Indication: Maternal exposure timing unspecified
     Route: 050
     Dates: start: 202210, end: 202410

REACTIONS (4)
  - Glucose-6-phosphate dehydrogenase deficiency [Not Recovered/Not Resolved]
  - Urinary tract infection neonatal [Recovered/Resolved]
  - Foetal exposure during pregnancy [Recovered/Resolved]
  - Exposure via breast milk [Unknown]

NARRATIVE: CASE EVENT DATE: 20240101
